FAERS Safety Report 7069893-6 (Version None)
Quarter: 2010Q4

REPORT INFORMATION
  Report Type: 
  Country: None (occurrence: None)
  Receive Date: 20101028
  Receipt Date: 20100714
  Transmission Date: 20110411
  Serious: No
  Sender: FDA-Public Use
  Company Number: US-WYE-H16210510

PATIENT
  Sex: Male
  Weight: 81.72 kg

DRUGS (6)
  1. EFFEXOR [Suspect]
     Indication: ANXIETY
     Route: 048
  2. EFFEXOR [Suspect]
     Route: 048
  3. EFFEXOR [Suspect]
     Route: 048
  4. EFFEXOR [Suspect]
     Route: 048
  5. EFFEXOR [Suspect]
     Route: 048
  6. AMFETAMINE ASPARTATE/AMFETAMINE SULFATE/DEXAMFETAMINE SACCHARATE/DEXAM [Concomitant]

REACTIONS (8)
  - DRUG EFFECT DECREASED [None]
  - FATIGUE [None]
  - FEELING ABNORMAL [None]
  - HUNGER [None]
  - INTENTIONAL DRUG MISUSE [None]
  - LAZINESS [None]
  - SEXUAL DYSFUNCTION [None]
  - WEIGHT INCREASED [None]
